FAERS Safety Report 14107729 (Version 1)
Quarter: 2017Q4

REPORT INFORMATION
  Report Type: Not Available
  Country: IR (occurrence: IR)
  Receive Date: 20171019
  Receipt Date: 20171019
  Transmission Date: 20180321
  Serious: Yes (Hospitalization)
  Sender: FDA-Public Use
  Company Number: IR-ANIPHARMA-2017-IR-000006

PATIENT
  Age: 38 Year
  Sex: Female

DRUGS (2)
  1. PYRIDOSTIGMINE (NON-SPECIFIC) [Suspect]
     Active Substance: PYRIDOSTIGMINE
  2. PREDNISOLONE. [Concomitant]
     Active Substance: PREDNISOLONE

REACTIONS (3)
  - Sinus bradycardia [Recovered/Resolved]
  - Hypotension [Recovered/Resolved]
  - Dyspnoea [Recovered/Resolved]
